FAERS Safety Report 15558741 (Version 1)
Quarter: 2018Q4

REPORT INFORMATION
  Report Type: Spontaneous
  Country: US (occurrence: US)
  Receive Date: 20181029
  Receipt Date: 20181029
  Transmission Date: 20190205
  Serious: No
  Sender: FDA-Public Use
  Company Number: US-ROCHE-2206262

PATIENT
  Age: 52 Year
  Sex: Female

DRUGS (2)
  1. OCREVUS [Suspect]
     Active Substance: OCRELIZUMAB
     Dosage: PARTIAL/HALF DOSE ;ONGOING: UNKNOWN
     Route: 065
     Dates: start: 201804
  2. OCREVUS [Suspect]
     Active Substance: OCRELIZUMAB
     Indication: RELAPSING-REMITTING MULTIPLE SCLEROSIS
     Dosage: PARTIAL/HALF DOSE, ONGOING: YES.
     Route: 065
     Dates: start: 201804

REACTIONS (1)
  - Sinusitis [Not Recovered/Not Resolved]
